FAERS Safety Report 10168689 (Version 2)
Quarter: 2014Q3

REPORT INFORMATION
  Report Type: Spontaneous
  Country: CA (occurrence: None)
  Receive Date: 20140509
  Receipt Date: 20140711
  Transmission Date: 20150326
  Serious: Yes (Other)
  Sender: FDA-Public Use
  Company Number: CA-015547

PATIENT
  Age: 36 Year
  Sex: Female
  Weight: 59 kg

DRUGS (5)
  1. MEDROL [Concomitant]
     Active Substance: METHYLPREDNISOLONE
  2. ESTRADERM [Concomitant]
     Active Substance: ESTRADIOL
  3. METRONIDAZOLE. [Concomitant]
     Active Substance: METRONIDAZOLE
  4. ENDOMETRIN [Suspect]
     Active Substance: PROGESTERONE
     Indication: INFERTILITY
     Route: 067
     Dates: start: 2013, end: 2013
  5. CLINDAMYCIN [Concomitant]
     Active Substance: CLINDAMYCIN\CLINDAMYCIN PHOSPHATE

REACTIONS (3)
  - Product quality issue [None]
  - Abortion [None]
  - Exposure during pregnancy [None]

NARRATIVE: CASE EVENT DATE: 2013
